FAERS Safety Report 4698712-8 (Version None)
Quarter: 2005Q2

REPORT INFORMATION
  Report Type: 
  Country: None (occurrence: None)
  Receive Date: 20050622
  Receipt Date: 20050523
  Transmission Date: 20051028
  Serious: No
  Sender: FDA-Public Use
  Company Number: SU-2005-003596

PATIENT
  Age: 54 Year
  Sex: Female

DRUGS (4)
  1. BENICAR HCT [Suspect]
     Indication: HYPERTENSION
     Dosage: 40.25 MG QD PO
     Route: 048
  2. LOPRESSOR [Concomitant]
  3. NORVASC [Concomitant]
  4. ACCUPRIL [Concomitant]

REACTIONS (1)
  - ARTHRITIS [None]
